FAERS Safety Report 23936127 (Version 7)
Quarter: 2025Q1

REPORT INFORMATION
  Report Type: Report from Study
  Country: CA (occurrence: CA)
  Receive Date: 20240604
  Receipt Date: 20250211
  Transmission Date: 20250409
  Serious: Yes (Other)
  Sender: TAKEDA
  Company Number: CA-TAKEDA-2024TUS053305

PATIENT
  Age: 39 Year
  Sex: Female

DRUGS (6)
  1. VEDOLIZUMAB [Suspect]
     Active Substance: VEDOLIZUMAB
     Indication: Colitis ulcerative
  2. VEDOLIZUMAB [Suspect]
     Active Substance: VEDOLIZUMAB
  3. VEDOLIZUMAB [Suspect]
     Active Substance: VEDOLIZUMAB
  4. VEDOLIZUMAB [Suspect]
     Active Substance: VEDOLIZUMAB
     Dosage: 300 MILLIGRAM, Q4WEEKS
     Dates: start: 20241112
  5. VEDOLIZUMAB [Suspect]
     Active Substance: VEDOLIZUMAB
     Dosage: 300 MILLIGRAM, Q4WEEKS
     Dates: end: 20250107
  6. PREDNISONE [Concomitant]
     Active Substance: PREDNISONE

REACTIONS (7)
  - Colitis ulcerative [Not Recovered/Not Resolved]
  - Drug ineffective [Recovered/Resolved]
  - Mouth ulceration [Not Recovered/Not Resolved]
  - Arthritis [Unknown]
  - Pouchitis [Unknown]
  - Off label use [Unknown]
  - Anal fissure [Not Recovered/Not Resolved]

NARRATIVE: CASE EVENT DATE: 20241112
